FAERS Safety Report 25347643 (Version 1)
Quarter: 2025Q2

REPORT INFORMATION
  Report Type: Spontaneous
  Country: US (occurrence: None)
  Receive Date: 20250522
  Receipt Date: 20250522
  Transmission Date: 20250716
  Serious: Yes (Disabling)
  Sender: FDA-CTU
  Company Number: None

PATIENT
  Age: 52 Year
  Sex: Male
  Weight: 77.4 kg

DRUGS (1)
  1. PROZAC [Suspect]
     Active Substance: FLUOXETINE HYDROCHLORIDE
     Indication: Obsessive-compulsive disorder
     Route: 048
     Dates: start: 19940101, end: 20240401

REACTIONS (16)
  - Withdrawal syndrome [None]
  - Visual impairment [None]
  - Dizziness [None]
  - Vertigo [None]
  - Therapy interrupted [None]
  - Balance disorder [None]
  - Fall [None]
  - Arthralgia [None]
  - Neuropathy peripheral [None]
  - Head discomfort [None]
  - Headache [None]
  - Genital pain [None]
  - Sexual dysfunction [None]
  - Eczema [None]
  - Gastrooesophageal reflux disease [None]
  - Depression [None]

NARRATIVE: CASE EVENT DATE: 20240701
